FAERS Safety Report 17567919 (Version 1)
Quarter: 2020Q1

REPORT INFORMATION
  Report Type: Spontaneous
  Country: FR (occurrence: FR)
  Receive Date: 20200321
  Receipt Date: 20200321
  Transmission Date: 20200409
  Serious: Yes (Life-Threatening)
  Sender: FDA-Public Use
  Company Number: FR-TEVA-2020-FR-1205052

PATIENT
  Age: 52 Year
  Sex: Female
  Weight: 72 kg

DRUGS (3)
  1. CARBAMAZEPINE. [Suspect]
     Active Substance: CARBAMAZEPINE
     Indication: POISONING DELIBERATE
     Dosage: UNSPECIFIED
     Route: 048
     Dates: start: 20200129, end: 20200129
  2. DIAZEPAM. [Suspect]
     Active Substance: DIAZEPAM
     Indication: POISONING DELIBERATE
     Dosage: UNSPECIFIED
     Route: 048
     Dates: start: 20200129, end: 20200129
  3. TRIMIPRAMINE BASE [Suspect]
     Active Substance: TRIMIPRAMINE
     Indication: POISONING DELIBERATE
     Dosage: UNSPECIFIED
     Route: 048
     Dates: start: 20200129, end: 20200129

REACTIONS (2)
  - Altered state of consciousness [Recovered/Resolved]
  - Electrocardiogram QRS complex prolonged [Recovered/Resolved]

NARRATIVE: CASE EVENT DATE: 20200129
